FAERS Safety Report 9641642 (Version 1)
Quarter: 2013Q4

REPORT INFORMATION
  Report Type: Spontaneous
  Country: CH (occurrence: CH)
  Receive Date: 20131023
  Receipt Date: 20131023
  Transmission Date: 20140711
  Serious: Yes (Death, Hospitalization)
  Sender: FDA-Public Use
  Company Number: CH-GLAXOSMITHKLINE-B0934731A

PATIENT
  Age: 46 Year
  Sex: Male

DRUGS (11)
  1. ZOFRAN [Suspect]
     Indication: PRODUCT USED FOR UNKNOWN INDICATION
     Dosage: 4MG PER DAY
     Route: 048
  2. NAVELBINE [Suspect]
     Indication: LUNG CARCINOMA CELL TYPE UNSPECIFIED STAGE I
     Dosage: 80MG PER DAY
     Route: 048
     Dates: start: 20130730, end: 20130730
  3. CLEXANE [Concomitant]
     Indication: EMBOLISM
     Dosage: 60MG TWICE PER DAY
     Route: 058
  4. DEXAMETHASONE [Concomitant]
     Dosage: 4MG PER DAY
     Route: 048
  5. INDERAL [Concomitant]
     Indication: VARICES OESOPHAGEAL
     Dosage: 10MG THREE TIMES PER DAY
     Route: 048
  6. FOLIC ACID [Concomitant]
     Dosage: .4MG PER DAY
     Route: 048
  7. TOREM [Concomitant]
     Dosage: 5MG PER DAY
     Route: 048
  8. NEXIUM [Concomitant]
     Dosage: 40MG PER DAY
     Route: 048
  9. CIPROFLOXACINE [Concomitant]
     Dosage: 750MG TWICE PER DAY
     Route: 048
  10. MST CONTINUS [Concomitant]
     Dosage: 30MG PER DAY
     Route: 048
  11. SEROQUEL [Concomitant]
     Dosage: 15MG PER DAY
     Route: 048

REACTIONS (2)
  - Myocardial infarction [Unknown]
  - Acute respiratory failure [Fatal]
